FAERS Safety Report 6421981-0 (Version None)
Quarter: 2009Q4

REPORT INFORMATION
  Report Type: 
  Country: None (occurrence: None)
  Receive Date: 20091030
  Receipt Date: 20091020
  Transmission Date: 20100525
  Serious: Yes (Hospitalization, Other)
  Sender: FDA-Public Use
  Company Number: US-MERCK-0910USA02604

PATIENT
  Age: 72 Year
  Sex: Female

DRUGS (8)
  1. VYTORIN [Suspect]
     Indication: HYPERCHOLESTEROLAEMIA
     Route: 048
     Dates: start: 20080101
  2. ASPIRIN [Concomitant]
     Route: 065
  3. HUMULIN R [Concomitant]
     Route: 065
  4. ISOSORBIDE [Concomitant]
     Route: 065
  5. COREG [Concomitant]
     Route: 065
  6. PREVACID [Concomitant]
     Route: 065
  7. PLAVIX [Concomitant]
     Route: 065
  8. COZAAR [Concomitant]
     Route: 065

REACTIONS (3)
  - CARDIAC DISORDER [None]
  - CARDIAC FAILURE [None]
  - CEREBROVASCULAR ACCIDENT [None]
